FAERS Safety Report 18909706 (Version 1)
Quarter: 2021Q1

REPORT INFORMATION
  Report Type: Spontaneous
  Country: US (occurrence: US)
  Receive Date: 20210218
  Receipt Date: 20210218
  Transmission Date: 20210420
  Serious: Yes (Other)
  Sender: FDA-Public Use
  Company Number: US-GLAXOSMITHKLINE-US2021GSK046410

PATIENT
  Sex: Male

DRUGS (8)
  1. RANITIDINE. [Suspect]
     Active Substance: RANITIDINE
     Indication: ULCER
  2. ZANTAC [Suspect]
     Active Substance: RANITIDINE HYDROCHLORIDE
     Indication: ULCER
     Dosage: 150 MG, QD
     Route: 065
     Dates: start: 198401, end: 201712
  3. ZANTAC [Suspect]
     Active Substance: RANITIDINE HYDROCHLORIDE
     Indication: ULCER
     Dosage: 150 MG, QD
     Route: 065
     Dates: start: 198401, end: 201712
  4. RANITIDINE CAPSULE [Suspect]
     Active Substance: RANITIDINE
     Indication: ULCER
  5. RANITIDINE. [Suspect]
     Active Substance: RANITIDINE
     Indication: ULCER
     Dosage: 150 MG, WE
     Route: 065
     Dates: start: 198401, end: 201712
  6. RANITIDINE CAPSULE [Suspect]
     Active Substance: RANITIDINE
     Indication: ULCER
     Dosage: 150 MG, WE
     Route: 065
     Dates: start: 198401, end: 201712
  7. RANITIDINE. [Suspect]
     Active Substance: RANITIDINE
     Indication: ULCER
     Dosage: 150 MG, WE
     Route: 065
     Dates: start: 198401, end: 201712
  8. RANITIDINE. [Suspect]
     Active Substance: RANITIDINE
     Indication: ULCER
     Dosage: 150 MG, WE
     Route: 065
     Dates: start: 198401, end: 201712

REACTIONS (3)
  - Bladder cancer [Unknown]
  - Lung neoplasm malignant [Unknown]
  - Prostate cancer [Unknown]
